FAERS Safety Report 6671751-3 (Version None)
Quarter: 2010Q2

REPORT INFORMATION
  Report Type: 
  Country: None (occurrence: None)
  Receive Date: 20100407
  Receipt Date: 20100405
  Transmission Date: 20101027
  Serious: Yes (Life-Threatening, Hospitalization, Other)
  Sender: FDA-Public Use
  Company Number: GB-ROXANE LABORATORIES, INC.-2010-RO-00374RO

PATIENT
  Age: 65 Year
  Sex: Male

DRUGS (18)
  1. DEXAMETHASONE [Suspect]
     Indication: MULTIPLE MYELOMA
  2. CYCLOPHOSPHAMIDE [Suspect]
     Indication: MULTIPLE MYELOMA
  3. VINCRISTINE [Suspect]
     Indication: MULTIPLE MYELOMA
  4. ADRIAMYCIN PFS [Suspect]
     Indication: MULTIPLE MYELOMA
  5. THALIDOMIDE [Suspect]
     Indication: MULTIPLE MYELOMA
  6. BORTEZOMIB [Suspect]
     Indication: MULTIPLE MYELOMA
     Dates: start: 20080801
  7. FLOXACILLIN SODIUM [Suspect]
     Indication: SPLINTER
     Route: 048
  8. FLOXACILLIN SODIUM [Suspect]
     Indication: CELLULITIS
     Route: 042
  9. PIPERACILLIN AND TAZOBACTAM [Suspect]
     Indication: SHOCK
  10. PIPERACILLIN AND TAZOBACTAM [Suspect]
     Indication: SEPSIS
  11. PIPERACILLIN AND TAZOBACTAM [Suspect]
     Indication: NECROTISING FASCIITIS
  12. PIPERACILLIN AND TAZOBACTAM [Suspect]
     Indication: PSEUDOMONAS INFECTION
  13. PIPERACILLIN AND TAZOBACTAM [Suspect]
     Indication: ABSCESS
  14. GENTAMICIN [Suspect]
     Indication: SHOCK
  15. GENTAMICIN [Suspect]
     Indication: SEPSIS
  16. CLINDAMYCIN [Suspect]
     Indication: NECROTISING FASCIITIS
  17. AZITHROMYCIN [Concomitant]
     Indication: PSEUDOMONAS INFECTION
  18. AZITHROMYCIN [Concomitant]
     Indication: ABSCESS

REACTIONS (9)
  - ABSCESS [None]
  - CELLULITIS [None]
  - DRUG INEFFECTIVE [None]
  - GASTROENTERITIS SALMONELLA [None]
  - HEPATITIS [None]
  - NECROTISING FASCIITIS [None]
  - PSEUDOMONAS INFECTION [None]
  - SEPSIS [None]
  - SHOCK [None]
